FAERS Safety Report 10984648 (Version 2)
Quarter: 2015Q2

REPORT INFORMATION
  Report Type: Spontaneous
  Country: US (occurrence: US)
  Receive Date: 20150403
  Receipt Date: 20150525
  Transmission Date: 20150821
  Serious: No
  Sender: FDA-Public Use
  Company Number: US-JNJFOC-20130617204

PATIENT
  Age: 65 Year
  Sex: Female
  Weight: 70.31 kg

DRUGS (3)
  1. IMODIUM [Suspect]
     Active Substance: LOPERAMIDE HYDROCHLORIDE
     Indication: ANTIDIARRHOEAL SUPPORTIVE CARE
     Dosage: AS DIRECTED
     Route: 048
  2. IMODIUM [Suspect]
     Active Substance: LOPERAMIDE HYDROCHLORIDE
     Route: 048
  3. MULTIPLE VITAMINS [Concomitant]
     Active Substance: VITAMINS
     Indication: VITAMIN SUPPLEMENTATION
     Route: 065

REACTIONS (1)
  - Drug ineffective for unapproved indication [Unknown]
